FAERS Safety Report 6340558-9 (Version None)
Quarter: 2009Q3

REPORT INFORMATION
  Report Type: 
  Country: None (occurrence: None)
  Receive Date: 20090902
  Receipt Date: 20090820
  Transmission Date: 20100115
  Serious: Yes (Other)
  Sender: FDA-Public Use
  Company Number: 2009AP000570

PATIENT
  Age: 6 Year
  Sex: Male

DRUGS (2)
  1. CARBAMAZEPINE [Suspect]
     Indication: EPILEPSY
  2. PHENYTOIN [Suspect]
     Indication: EPILEPSY

REACTIONS (3)
  - DRUG HYPERSENSITIVITY [None]
  - IDIOSYNCRATIC DRUG REACTION [None]
  - RASH [None]
